FAERS Safety Report 13040810 (Version 2)
Quarter: 2016Q4

REPORT INFORMATION
  Report Type: Spontaneous
  Country: PT (occurrence: PT)
  Receive Date: 20161219
  Receipt Date: 20161221
  Transmission Date: 20170207
  Serious: Yes (Disabling, Other)
  Sender: FDA-Public Use
  Company Number: PT-TEVA-719087ISR

PATIENT
  Age: 50 Year
  Sex: Female
  Weight: 49 kg

DRUGS (6)
  1. TRAZODONE [Concomitant]
     Active Substance: TRAZODONE HYDROCHLORIDE
     Dosage: 150 MILLIGRAM DAILY;
     Route: 048
  2. RIVOTRIL [Concomitant]
     Active Substance: CLONAZEPAM
     Dosage: .5 MILLIGRAM DAILY;
     Route: 048
  3. LETROZOLE. [Suspect]
     Active Substance: LETROZOLE
     Indication: BREAST CANCER
     Dosage: 2.5 MILLIGRAM DAILY;
     Route: 048
     Dates: start: 20161006, end: 20161123
  4. FOLICIL [Concomitant]
     Active Substance: FOLIC ACID
     Route: 048
  5. ZOLPIDEM [Concomitant]
     Active Substance: ZOLPIDEM\ZOLPIDEM TARTRATE
     Dosage: 10 MILLIGRAM DAILY;
     Route: 048
  6. METOCLOPRAMIDA [Concomitant]
     Active Substance: METOCLOPRAMIDE HYDROCHLORIDE
     Dosage: 3 DOSAGE FORMS DAILY;
     Route: 048

REACTIONS (2)
  - Bone pain [Unknown]
  - Aphonia [Unknown]

NARRATIVE: CASE EVENT DATE: 20161010
